FAERS Safety Report 7791497-8 (Version None)
Quarter: 2011Q4

REPORT INFORMATION
  Report Type: 
  Country: None (occurrence: None)
  Receive Date: 20111003
  Receipt Date: 20110923
  Transmission Date: 20120403
  Serious: No
  Sender: FDA-Public Use
  Company Number: CH-JNJFOC-20110906521

PATIENT
  Sex: Male
  Weight: 47 kg

DRUGS (2)
  1. RISPERDAL [Suspect]
     Indication: PSYCHOTIC DISORDER
     Dosage: 0.5 MG IN THE MORNING AND 0.25 MG IN THE EVENING
     Route: 048
     Dates: start: 20101001
  2. RISPERDAL [Suspect]
     Dosage: IN THE MORNING
     Route: 048

REACTIONS (4)
  - DRUG INEFFECTIVE [None]
  - ENURESIS [None]
  - FATIGUE [None]
  - WEIGHT INCREASED [None]
